FAERS Safety Report 5190643-2 (Version None)
Quarter: 2006Q4

REPORT INFORMATION
  Report Type: 
  Country: None (occurrence: None)
  Receive Date: 20061222
  Receipt Date: 20061024
  Transmission Date: 20070319
  Serious: No
  Sender: FDA-Public Use
  Company Number: US-BRISTOL-MYERS SQUIBB COMPANY-13553359

PATIENT
  Age: 65 Year
  Sex: Female
  Weight: 63 kg

DRUGS (6)
  1. ORENCIA [Suspect]
     Indication: RHEUMATOID ARTHRITIS
     Route: 042
     Dates: start: 20060501, end: 20060701
  2. METHOTREXATE [Concomitant]
  3. FOLIC ACID [Concomitant]
  4. PREDNISONE TAB [Concomitant]
  5. VITAMIN CAP [Concomitant]
  6. CALCIUM SUPPLEMENT [Concomitant]

REACTIONS (3)
  - EAR INFECTION [None]
  - SINUS CONGESTION [None]
  - SINUSITIS [None]
